FAERS Safety Report 9280699 (Version 6)
Quarter: 2013Q4

REPORT INFORMATION
  Report Type: Spontaneous
  Country: US (occurrence: US)
  Receive Date: 20130509
  Receipt Date: 20131126
  Transmission Date: 20140711
  Serious: Yes (Death)
  Sender: FDA-Public Use
  Company Number: US-PFIZER INC-2013143173

PATIENT
  Age: 53 Year
  Sex: Female
  Weight: 68.03 kg

DRUGS (4)
  1. NEURONTIN [Suspect]
     Indication: FIBROMYALGIA
     Dosage: 1200 MG, 3X/DAY
     Route: 048
     Dates: start: 2009
  2. SIMVASTATIN [Concomitant]
     Indication: BLOOD CHOLESTEROL ABNORMAL
     Dosage: 20 MG, 1X/DAY
  3. LEXAPRO [Concomitant]
     Indication: BIPOLAR DISORDER
     Dosage: 20 MG, 1X/DAY
  4. ZYPREXA [Concomitant]
     Indication: BIPOLAR DISORDER
     Dosage: 15 MG, 1X/DAY

REACTIONS (7)
  - Off label use [Fatal]
  - Completed suicide [Fatal]
  - Pain in extremity [Unknown]
  - Neck pain [Unknown]
  - Paraesthesia [Unknown]
  - Hypoaesthesia [Unknown]
  - Migraine [Recovering/Resolving]
